FAERS Safety Report 4647469-5 (Version None)
Quarter: 2005Q2

REPORT INFORMATION
  Report Type: 
  Country: None (occurrence: None)
  Receive Date: 20050428
  Receipt Date: 20050418
  Transmission Date: 20051028
  Serious: Yes (Hospitalization)
  Sender: FDA-Public Use
  Company Number: GBWYE594518APR05

PATIENT
  Age: 67 Year
  Sex: Female
  Weight: 73 kg

DRUGS (8)
  1. ENBREL [Suspect]
     Indication: RHEUMATOID ARTHRITIS
     Route: 058
  2. PREDNISOLONE [Concomitant]
     Dosage: 10 MG, FREQUENCY UNKNOWN
  3. CLOPIDOGREL [Concomitant]
     Dosage: 75 MG, FREQUENCY UNKNOWN
     Route: 048
  4. LISINOPRIL [Concomitant]
     Dosage: 30 MG, FREQUENCY UNKNOWN
     Route: 048
  5. OMEPRAZOLE [Concomitant]
     Dosage: 20 MG, FREQUENCY UNKNOWN
     Route: 048
  6. CYANOCOBALAMIN [Concomitant]
     Dosage: UNKNOWN
  7. FOLIC ACID [Concomitant]
     Dosage: UNKNOWN
  8. IRON [Concomitant]
     Dosage: UNKNOWN

REACTIONS (2)
  - TRANSIENT ISCHAEMIC ATTACK [None]
  - VISUAL FIELD DEFECT [None]
